FAERS Safety Report 11573247 (Version 2)
Quarter: 2015Q4

REPORT INFORMATION
  Report Type: Spontaneous
  Country: US (occurrence: US)
  Receive Date: 20150916
  Receipt Date: 20151027
  Transmission Date: 20160304
  Serious: No
  Sender: FDA-Public Use
  Company Number: US-ELI_LILLY_AND_COMPANY-US200910006824

PATIENT
  Sex: Female

DRUGS (1)
  1. FORTEO [Suspect]
     Active Substance: TERIPARATIDE
     Dosage: UNK, UNKNOWN
     Dates: start: 200612

REACTIONS (5)
  - Renal impairment [Unknown]
  - Bone density decreased [Unknown]
  - Urticaria [Recovered/Resolved]
  - Medication error [Unknown]
  - Pruritus [Recovered/Resolved]
